FAERS Safety Report 4668977-7 (Version None)
Quarter: 2005Q2

REPORT INFORMATION
  Report Type: 
  Country: None (occurrence: None)
  Receive Date: 20050523
  Receipt Date: 20050411
  Transmission Date: 20051028
  Serious: Yes (Congenital Anomaly)
  Sender: FDA-Public Use
  Company Number: GB-GLAXOSMITHKLINE-B0378167A

PATIENT

DRUGS (4)
  1. COMBIVIR [Suspect]
     Dosage: 900MG PER DAY
  2. VIRACEPT [Suspect]
     Dosage: 2500MG PER DAY
     Dates: end: 20050417
  3. KALETRA [Suspect]
     Dosage: 6CAP PER DAY
     Dates: start: 20050228
  4. EFAVIRENZ [Suspect]
     Dosage: 600MG PER DAY
     Dates: end: 20050417

REACTIONS (4)
  - BLADDER HYPERTROPHY [None]
  - CONGENITAL URETHRAL ANOMALY [None]
  - DRUG EXPOSURE DURING PREGNANCY [None]
  - HYDRONEPHROSIS [None]
